FAERS Safety Report 10601749 (Version 1)
Quarter: 2014Q4

REPORT INFORMATION
  Report Type: Report from Study
  Country: AR (occurrence: AR)
  Receive Date: 20141124
  Receipt Date: 20141124
  Transmission Date: 20150529
  Serious: Yes (Other)
  Sender: FDA-Public Use
  Company Number: PHHY2014AR153652

PATIENT
  Sex: Female

DRUGS (1)
  1. RASILEZ [Suspect]
     Active Substance: ALISKIREN
     Indication: HYPERTENSION
     Dosage: UNK UKN, BID
     Route: 065
     Dates: end: 201308

REACTIONS (7)
  - Blood pressure increased [Unknown]
  - Weight increased [Unknown]
  - Weight decreased [Unknown]
  - Headache [Unknown]
  - Fibromyalgia [Unknown]
  - Blood glucose increased [Unknown]
  - Pain in extremity [Unknown]
